FAERS Safety Report 20399956 (Version 1)
Quarter: 2022Q1

REPORT INFORMATION
  Report Type: Spontaneous
  Country: US (occurrence: US)
  Receive Date: 20220131
  Receipt Date: 20220131
  Transmission Date: 20220423
  Serious: Yes (Other)
  Sender: FDA-Public Use
  Company Number: US-STRIDES ARCOLAB LIMITED-2022SP000742

PATIENT
  Age: 65 Year
  Sex: Female

DRUGS (4)
  1. PREDNISOLONE [Suspect]
     Active Substance: PREDNISOLONE
     Indication: Stem cell transplant
     Dosage: UNK
     Route: 065
  2. PREDNISOLONE [Suspect]
     Active Substance: PREDNISOLONE
     Indication: Allogenic stem cell transplantation
     Dosage: 10 MILLIGRAM, QD (10 MILLIGRAM DAILY WITH TAPER)
     Route: 065
  3. TACROLIMUS [Suspect]
     Active Substance: TACROLIMUS
     Indication: Stem cell transplant
     Dosage: UNK
     Route: 065
  4. TACROLIMUS [Suspect]
     Active Substance: TACROLIMUS
     Indication: Allogenic stem cell transplantation

REACTIONS (5)
  - Squamous cell carcinoma of the oral cavity [Unknown]
  - Malignant neoplasm progression [Unknown]
  - Neuropathy peripheral [Unknown]
  - Herpes simplex viraemia [Unknown]
  - Off label use [Unknown]
